FAERS Safety Report 7051818-0 (Version None)
Quarter: 2010Q4

REPORT INFORMATION
  Report Type: 
  Country: None (occurrence: None)
  Receive Date: 20101019
  Receipt Date: 20101007
  Transmission Date: 20110411
  Serious: Yes (Hospitalization, Other)
  Sender: FDA-Public Use
  Company Number: FR-SANOFI-AVENTIS-2010SA060978

PATIENT
  Age: 72 Year
  Sex: Male

DRUGS (9)
  1. FUROSEMIDE [Suspect]
     Route: 048
     Dates: start: 20100528, end: 20100607
  2. RIFAMPICIN [Suspect]
     Indication: ENDOCARDITIS
     Route: 042
     Dates: start: 20100528, end: 20100607
  3. KARDEGIC [Concomitant]
     Route: 048
     Dates: start: 20100528, end: 20100602
  4. ESOMEPRAZOLE [Concomitant]
     Route: 048
     Dates: start: 20100528, end: 20100602
  5. PRAVASTATIN [Concomitant]
     Route: 048
     Dates: start: 20100528
  6. LACTULOSE [Concomitant]
     Indication: CONSTIPATION
     Route: 048
     Dates: start: 20100528
  7. LANTUS [Concomitant]
     Indication: TYPE 2 DIABETES MELLITUS
     Route: 048
     Dates: start: 20100528
  8. DIFFU K [Concomitant]
     Route: 048
     Dates: start: 20100528
  9. BRISTOPEN [Concomitant]
     Indication: ENDOCARDITIS
     Dosage: 3 G 4 TIMES DAILY
     Route: 042
     Dates: start: 20100528, end: 20100709

REACTIONS (1)
  - RENAL FAILURE ACUTE [None]
